FAERS Safety Report 18758168 (Version 1)
Quarter: 2021Q1

REPORT INFORMATION
  Report Type: Report from Study
  Country: US (occurrence: US)
  Receive Date: 20210119
  Receipt Date: 20210119
  Transmission Date: 20210419
  Serious: Yes (Life-Threatening, Other)
  Sender: FDA-Public Use
  Company Number: US-PFIZER INC-2021016674

PATIENT

DRUGS (1)
  1. DOPAMINE HCL [Suspect]
     Active Substance: DOPAMINE HYDROCHLORIDE
     Indication: NEPHROPATHY TOXIC
     Dosage: UNK (3 UG/KG/MIN)/(CONTINUOUS?INFUSION LOWDOSE)

REACTIONS (1)
  - Ventricular tachycardia [Unknown]
